FAERS Safety Report 25858326 (Version 1)
Quarter: 2025Q3

REPORT INFORMATION
  Report Type: Spontaneous
  Country: JP (occurrence: JP)
  Receive Date: 20250929
  Receipt Date: 20250929
  Transmission Date: 20251020
  Serious: Yes (Death, Life-Threatening, Hospitalization)
  Sender: ACCORD
  Company Number: JP-Accord-506448

PATIENT
  Age: 85 Year
  Sex: Male

DRUGS (2)
  1. BICALUTAMIDE [Suspect]
     Active Substance: BICALUTAMIDE
     Indication: Prostate cancer
  2. LEUPROLIDE ACETATE [Suspect]
     Active Substance: LEUPROLIDE ACETATE
     Indication: Prostate cancer

REACTIONS (8)
  - Malignant pleural effusion [Fatal]
  - Neuroendocrine cancer of the prostate metastatic [Fatal]
  - Respiratory failure [Fatal]
  - Transdifferentiation of neoplasm [Fatal]
  - Metastases to lung [Fatal]
  - Metastases to pleura [Fatal]
  - Metastases to liver [Fatal]
  - Metastases to lymph nodes [Fatal]
